FAERS Safety Report 19043206 (Version 2)
Quarter: 2021Q2

REPORT INFORMATION
  Report Type: Spontaneous
  Country: US (occurrence: US)
  Receive Date: 20210323
  Receipt Date: 20210407
  Transmission Date: 20210717
  Serious: Yes (Hospitalization, Other)
  Sender: FDA-Public Use
  Company Number: US-AMNEAL PHARMACEUTICALS-2021-AMRX-00844

PATIENT
  Age: 29 Year
  Sex: Female
  Weight: 56.24 kg

DRUGS (9)
  1. MONTELUKAST [Concomitant]
     Active Substance: MONTELUKAST SODIUM
     Indication: ASTHMA
     Dosage: 10 MILLIGRAM, DAILY
     Route: 048
     Dates: start: 201804
  2. ACTIVELLA [Suspect]
     Active Substance: ESTRADIOL\NORETHINDRONE ACETATE
     Dosage: 1 DOSAGE FORM, DAILY
     Route: 048
     Dates: start: 20210222
  3. CETIRIZINE [Concomitant]
     Active Substance: CETIRIZINE HYDROCHLORIDE
     Indication: SEASONAL ALLERGY
     Dosage: 10 MILLIGRAM, DAILY
     Route: 048
     Dates: start: 2003
  4. ELAGOLIX [Suspect]
     Active Substance: ELAGOLIX
     Indication: ENDOMETRIOSIS
     Dosage: 200 MILLIGRAM, 2X/DAY
     Route: 048
     Dates: start: 20200106
  5. ALBUTEROL [SALBUTAMOL] [Concomitant]
     Active Substance: ALBUTEROL
     Indication: ASTHMA
     Dosage: 90 MICROGRAM AS NEEDED
     Dates: start: 201804
  6. QVAR [Concomitant]
     Active Substance: BECLOMETHASONE DIPROPIONATE
     Indication: ASTHMA
     Dosage: 80 MICROGRAM, 2X/DAY
     Dates: start: 20190525
  7. ACTIVELLA [Suspect]
     Active Substance: ESTRADIOL\NORETHINDRONE ACETATE
     Indication: ENDOMETRIOSIS
     Dosage: 1 DOSAGE FORM, DAILY
     Route: 048
     Dates: start: 20190109, end: 20210218
  8. RANITIDINE. [Concomitant]
     Active Substance: RANITIDINE
     Indication: GASTROOESOPHAGEAL REFLUX DISEASE
     Dosage: 300 MILLIGRAM, AS NEEDED
     Route: 048
     Dates: start: 2010
  9. TRIAMCINOLONE [Concomitant]
     Active Substance: TRIAMCINOLONE
     Indication: ECZEMA
     Dosage: 1 APPLICATION AS NEEDED
     Route: 061
     Dates: start: 201804

REACTIONS (1)
  - Appendicitis [Recovered/Resolved]

NARRATIVE: CASE EVENT DATE: 20210220
